FAERS Safety Report 9330934 (Version 1)
Quarter: 2013Q2

REPORT INFORMATION
  Report Type: Spontaneous
  Country: US (occurrence: US)
  Receive Date: 20130605
  Receipt Date: 20130605
  Transmission Date: 20140414
  Serious: No
  Sender: FDA-Public Use
  Company Number: US-BAYER-2013-068065

PATIENT
  Age: 82 Year
  Sex: Female
  Weight: 24.49 kg

DRUGS (3)
  1. ALEVE CAPLET [Suspect]
     Indication: PYREXIA
     Dosage: 1 DF, QD
     Route: 048
     Dates: start: 20130525, end: 20130525
  2. LOSARTAN [Concomitant]
  3. ATENOLOL [Concomitant]

REACTIONS (1)
  - Feeling abnormal [Recovered/Resolved]
